FAERS Safety Report 5877333-5 (Version None)
Quarter: 2008Q3

REPORT INFORMATION
  Report Type: 
  Country: None (occurrence: None)
  Receive Date: 20080908
  Receipt Date: 20080825
  Transmission Date: 20090109
  Serious: Yes (Other)
  Sender: FDA-Public Use
  Company Number: DSA_32343_2008

PATIENT
  Sex: Female

DRUGS (4)
  1. LORAZEPAM [Suspect]
     Indication: DRUG USE FOR UNKNOWN INDICATION
     Dosage: (1.5 MG QD)
     Dates: start: 20080101
  2. EFEXOR /01233802/ (EFEXOR - VENLAFAXINE HYDROCHLORIDE) (NOT SPECIFIED) [Suspect]
     Indication: DRUG USE FOR UNKNOWN INDICATION
     Dosage: (150 MG
  3. SOLIAN (SOLIAN - AMISULPRIDE) (NOT SPECIFIED) [Suspect]
     Indication: DRUG USE FOR UNKNOWN INDICATION
     Dosage: (50 MG
  4. TIATRAL /00002701/ (TIATRAL - ACETYLSALICYLIC ACID ) (NOT SPECIFIED) [Suspect]
     Indication: DRUG USE FOR UNKNOWN INDICATION
     Dosage: (100 MG

REACTIONS (2)
  - SPEECH DISORDER [None]
  - TONGUE DISORDER [None]
